FAERS Safety Report 7419808 (Version 3)
Quarter: 2020Q3

REPORT INFORMATION
  Report Type: Report from Study
  Country: US (occurrence: US)
  Receive Date: 20100615
  Receipt Date: 20100831
  Transmission Date: 20201104
  Serious: Yes (Hospitalization)
  Sender: FDA-Public Use
  Company Number: US-ROCHE-708829

PATIENT
  Age: 64 Year
  Sex: Female
  Weight: 74.4 kg

DRUGS (7)
  1. PREMPRO [Concomitant]
     Active Substance: ESTROGENS, CONJUGATED\MEDROXYPROGESTERONE ACETATE
     Indication: MENOPAUSE
     Dosage: DOSE: 0.3/ 1.5 ONCE DAILY (QD).
     Route: 048
  2. CELEBREX [Concomitant]
     Active Substance: CELECOXIB
     Indication: RHEUMATOID ARTHRITIS
     Dosage: DOSE: 200 ONCE A DAY (QD).
     Route: 048
  3. FORTEO [Concomitant]
     Active Substance: TERIPARATIDE
     Dosage: REPLACEMENT FOR BONIVA
  4. CELEXA [Concomitant]
     Active Substance: CITALOPRAM HYDROBROMIDE
     Dosage: DOSE: 40 ONCE A DAY (QD)
     Route: 048
  5. CALCIUM [Concomitant]
     Active Substance: CALCIUM
  6. PLAQUENIL [Concomitant]
     Active Substance: HYDROXYCHLOROQUINE SULFATE
     Indication: RHEUMATOID ARTHRITIS
     Dosage: DOSE: 200 ONCE A DAY (QD)
     Route: 048
  7. IBANDRONIC ACID. [Suspect]
     Active Substance: IBANDRONIC ACID
     Indication: BONE DENSITY DECREASED
     Dosage: DOSE: 150, OTHER INDICATION: OSTEOPOROSIS AND ^LOW BASELINE BONE MINERAL DENSITY (BMD)^.
     Route: 048

REACTIONS (2)
  - Gastrooesophageal reflux disease [Not Recovered/Not Resolved]
  - Femur fracture [Recovering/Resolving]

NARRATIVE: CASE EVENT DATE: 20080712
